FAERS Safety Report 24234077 (Version 1)
Quarter: 2024Q3

REPORT INFORMATION
  Report Type: Spontaneous
  Country: US (occurrence: None)
  Receive Date: 20240821
  Receipt Date: 20240821
  Transmission Date: 20241016
  Serious: No
  Sender: Public
  Company Number: None

PATIENT
  Age: 80 Year
  Sex: Male

DRUGS (1)
  1. LECANEMAB [Suspect]
     Active Substance: LECANEMAB

REACTIONS (1)
  - Amyloid related imaging abnormality-oedema/effusion [None]
